FAERS Safety Report 17895775 (Version 1)
Quarter: 2020Q2

REPORT INFORMATION
  Report Type: Spontaneous
  Country: GB (occurrence: GB)
  Receive Date: 20200615
  Receipt Date: 20200615
  Transmission Date: 20200714
  Serious: Yes (Other)
  Sender: FDA-Public Use
  Company Number: GB-AMGEN-GBRSP2020090966

PATIENT
  Age: 65 Year
  Sex: Female

DRUGS (16)
  1. LANSOPRAZOLE. [Concomitant]
     Active Substance: LANSOPRAZOLE
  2. SITAGLIPTIN [Concomitant]
     Active Substance: SITAGLIPTIN
  3. TRAMADOL. [Concomitant]
     Active Substance: TRAMADOL
  4. NAPROXEN. [Concomitant]
     Active Substance: NAPROXEN
  5. ATORVASTATIN [Concomitant]
     Active Substance: ATORVASTATIN
  6. ZOPICLONE [Concomitant]
     Active Substance: ZOPICLONE
  7. RAMIPRIL. [Concomitant]
     Active Substance: RAMIPRIL
  8. CITALOPRAM [Concomitant]
     Active Substance: CITALOPRAM HYDROBROMIDE
  9. LEVOTHYROXINE SODIUM. [Concomitant]
     Active Substance: LEVOTHYROXINE SODIUM
  10. DAPAGLIFLOZIN. [Concomitant]
     Active Substance: DAPAGLIFLOZIN
  11. FOLIC ACID. [Concomitant]
     Active Substance: FOLIC ACID
  12. GABAPENTIN. [Concomitant]
     Active Substance: GABAPENTIN
  13. METHOTREXATE. [Concomitant]
     Active Substance: METHOTREXATE
  14. AMGEVITA [Suspect]
     Active Substance: ADALIMUMAB
     Indication: RHEUMATOID ARTHRITIS
     Route: 058
     Dates: start: 20190805, end: 20200302
  15. HYDROXYCHLOROQUINE [Concomitant]
     Active Substance: HYDROXYCHLOROQUINE
  16. METFORMIN [Concomitant]
     Active Substance: METFORMIN HYDROCHLORIDE

REACTIONS (2)
  - Cerebral small vessel ischaemic disease [Unknown]
  - Hypoaesthesia [Recovering/Resolving]

NARRATIVE: CASE EVENT DATE: 20200301
